FAERS Safety Report 14185488 (Version 4)
Quarter: 2017Q4

REPORT INFORMATION
  Report Type: Spontaneous
  Country: GB (occurrence: GB)
  Receive Date: 20171113
  Receipt Date: 20171213
  Transmission Date: 20180321
  Serious: Yes (Death, Life-Threatening, Hospitalization, Other)
  Sender: FDA-Public Use
  Company Number: GB-MYLANLABS-2017M1072307

PATIENT
  Age: 51 Year
  Sex: Male

DRUGS (2)
  1. CLOZARIL [Suspect]
     Active Substance: CLOZAPINE
     Indication: SCHIZOPHRENIA
     Dosage: UNK
     Route: 048
     Dates: start: 20021112, end: 20171105
  2. CLOZARIL [Suspect]
     Active Substance: CLOZAPINE
     Dosage: UNK
     Route: 048
     Dates: start: 201711

REACTIONS (9)
  - Intestinal metastasis [Unknown]
  - Neutrophil count increased [Unknown]
  - Terminal state [Unknown]
  - Gastrointestinal carcinoma [Unknown]
  - White blood cell count increased [Unknown]
  - Surgery [Unknown]
  - Intestinal obstruction [Unknown]
  - Death [Fatal]
  - Schizophrenia [Unknown]

NARRATIVE: CASE EVENT DATE: 201711
